FAERS Safety Report 23113420 (Version 2)
Quarter: 2023Q4

REPORT INFORMATION
  Report Type: Spontaneous
  Country: FR (occurrence: FR)
  Receive Date: 20231027
  Receipt Date: 20231227
  Transmission Date: 20240110
  Serious: Yes (Other)
  Sender: FDA-Public Use
  Company Number: FR-SA-SAC20231022000059

PATIENT
  Age: 83 Year
  Sex: Female

DRUGS (5)
  1. LANTUS SOLOSTAR [Suspect]
     Active Substance: INSULIN GLARGINE
     Indication: Type 2 diabetes mellitus
     Dosage: 20 U, HS
     Route: 058
     Dates: start: 201708
  2. SIMVASTATIN [Concomitant]
     Active Substance: SIMVASTATIN
     Dosage: 1 DF, QD
  3. ZOLPIDEM [Concomitant]
     Active Substance: ZOLPIDEM TARTRATE
     Dosage: 0.5 DF, QD
  4. NOVORAPID [Concomitant]
     Active Substance: INSULIN ASPART
     Dosage: UNITS BEFORE EACH MEAL
  5. LEVOTHYROXINE [Concomitant]
     Active Substance: LEVOTHYROXINE
     Dosage: UNK

REACTIONS (11)
  - Syncope [Unknown]
  - Diabetes mellitus [Unknown]
  - Malaise [Unknown]
  - Pain in extremity [Unknown]
  - Foot fracture [Unknown]
  - Gait inability [Unknown]
  - Dizziness [Unknown]
  - Fall [Unknown]
  - Tremor [Unknown]
  - Asthenia [Unknown]
  - Injection site induration [Unknown]

NARRATIVE: CASE EVENT DATE: 20230928
